FAERS Safety Report 15082314 (Version 1)
Quarter: 2018Q2

REPORT INFORMATION
  Report Type: Spontaneous
  Country: US (occurrence: US)
  Receive Date: 20180607
  Receipt Date: 20180607
  Transmission Date: 20180711
  Serious: No
  Sender: FDA-Public Use
  Company Number: None

PATIENT
  Age: 62 Year
  Sex: Female

DRUGS (1)
  1. METHOTREXATE 25 MG TEVA [Suspect]
     Active Substance: METHOTREXATE
     Indication: PRODUCT USED FOR UNKNOWN INDICATION
     Dosage: 0.6ML (15MG) WEEKLY
     Route: 030
     Dates: start: 20180322, end: 20180418

REACTIONS (3)
  - Alopecia [None]
  - Nausea [None]
  - Vision blurred [None]

NARRATIVE: CASE EVENT DATE: 20180605
